FAERS Safety Report 11939575 (Version 1)
Quarter: 2016Q1

REPORT INFORMATION
  Report Type: Spontaneous
  Country: US (occurrence: US)
  Receive Date: 20160122
  Receipt Date: 20160122
  Transmission Date: 20160526
  Serious: No
  Sender: FDA-Public Use
  Company Number: US-PFIZER INC-2016009408

PATIENT
  Age: 64 Year
  Sex: Female

DRUGS (2)
  1. LETROZOLE. [Suspect]
     Active Substance: LETROZOLE
     Dosage: UNK
  2. IBRANCE [Suspect]
     Active Substance: PALBOCICLIB
     Dosage: 125 MG, CYCLIC (TAKE ONE CAP QD DAILY DAYS 1 THROUGH 21 OUT OF A 28 DAYS CYCLE)
     Route: 048

REACTIONS (5)
  - Fatigue [Unknown]
  - Alopecia [Unknown]
  - Epistaxis [Unknown]
  - Dizziness [Unknown]
  - Muscular weakness [Unknown]
